FAERS Safety Report 7636545-0 (Version None)
Quarter: 2011Q3

REPORT INFORMATION
  Report Type: 
  Country: None (occurrence: None)
  Receive Date: 20110719
  Receipt Date: 20110605
  Transmission Date: 20111222
  Serious: Yes (Other)
  Sender: FDA-Public Use
  Company Number: FK201101318

PATIENT
  Age: 22 Year
  Sex: Female

DRUGS (6)
  1. LINEZOLID [Concomitant]
  2. DEXAMETHASONE SODIUM PHOSPHATE [Suspect]
     Indication: PRODUCT USED FOR UNKNOWN INDICATION
     Dosage: 2 GM, Q 8 HOURS
  3. PHENOBARBITAL TAB [Concomitant]
  4. PHENYTOIN [Suspect]
     Indication: PRODUCT USED FOR UNKNOWN INDICATION
     Dosage: 100 MG, Q 8 HOURS
  5. VANCOMYCIN HYCHLORIDE [Suspect]
     Indication: PRODUCT USED FOR UNKNOWN INDICATION
     Dosage: 1 GM, Q 12 HOURS
  6. CEFEPIME [Concomitant]

REACTIONS (2)
  - STEVENS-JOHNSON SYNDROME [None]
  - RED MAN SYNDROME [None]
